FAERS Safety Report 7778379-2 (Version None)
Quarter: 2011Q3

REPORT INFORMATION
  Report Type: 
  Country: None (occurrence: None)
  Receive Date: 20110926
  Receipt Date: 20110920
  Transmission Date: 20111222
  Serious: Yes (Other)
  Sender: FDA-Public Use
  Company Number: US-GLAXOSMITHKLINE-A0870658A

PATIENT
  Age: 47 Year
  Sex: Male

DRUGS (9)
  1. PREDNISONE [Concomitant]
  2. MULTI-VITAMIN [Concomitant]
  3. HYDRALAZINE HCL [Concomitant]
  4. UNKNOWN MEDICATION [Concomitant]
  5. ASPIRIN [Concomitant]
  6. CYCLOSPORINE [Concomitant]
  7. LOVAZA [Concomitant]
  8. EPIVIR-HBV [Suspect]
     Indication: HEPATITIS B
     Dosage: 100MG PER DAY
     Route: 048
     Dates: start: 19981201
  9. METOPROLOL TARTRATE [Concomitant]

REACTIONS (16)
  - HEPATIC ENZYME INCREASED [None]
  - BURNING SENSATION [None]
  - PRURITUS [None]
  - DRY MOUTH [None]
  - TONGUE COATED [None]
  - PARANOIA [None]
  - ARTHROPATHY [None]
  - INSOMNIA [None]
  - MALAISE [None]
  - PRODUCT QUALITY ISSUE [None]
  - MUSCULAR WEAKNESS [None]
  - PAIN [None]
  - OROPHARYNGEAL PAIN [None]
  - PRODUCT ODOUR ABNORMAL [None]
  - FATIGUE [None]
  - SUSPICIOUSNESS [None]
